FAERS Safety Report 5824162-4 (Version None)
Quarter: 2008Q3

REPORT INFORMATION
  Report Type: 
  Country: None (occurrence: None)
  Receive Date: 20080722
  Receipt Date: 20080703
  Transmission Date: 20090109
  Serious: Yes (Other)
  Sender: FDA-Public Use
  Company Number: 002#2#2008-00292

PATIENT
  Age: 73 Year
  Sex: Male
  Weight: 104 kg

DRUGS (14)
  1. NEUPRO [Suspect]
     Indication: PARKINSON'S DISEASE
     Dosage: 2MG/24H,1 IN 1 D,TRANSDERMAL; 4MG/24H,1 IN 1 D,TRANSDERMAL; 6MG/24H,1 IN 1 D,TRANSDERMAL; 2MG/24H,1
     Route: 062
     Dates: start: 20070801, end: 20070901
  2. NEUPRO [Suspect]
     Indication: PARKINSON'S DISEASE
     Dosage: 2MG/24H,1 IN 1 D,TRANSDERMAL; 4MG/24H,1 IN 1 D,TRANSDERMAL; 6MG/24H,1 IN 1 D,TRANSDERMAL; 2MG/24H,1
     Route: 062
     Dates: start: 20070901, end: 20071001
  3. NEUPRO [Suspect]
     Indication: PARKINSON'S DISEASE
     Dosage: 2MG/24H,1 IN 1 D,TRANSDERMAL; 4MG/24H,1 IN 1 D,TRANSDERMAL; 6MG/24H,1 IN 1 D,TRANSDERMAL; 2MG/24H,1
     Route: 062
     Dates: start: 20071001, end: 20071001
  4. NEUPRO [Suspect]
     Indication: PARKINSON'S DISEASE
     Dosage: 2MG/24H,1 IN 1 D,TRANSDERMAL; 4MG/24H,1 IN 1 D,TRANSDERMAL; 6MG/24H,1 IN 1 D,TRANSDERMAL; 2MG/24H,1
     Route: 062
     Dates: start: 20080401, end: 20080427
  5. PARCOPA       -TABLETS (CARBDOPA,LEVODOPA) [Suspect]
     Indication: PARKINSON'S DISEASE
     Dosage: MG,ORAL
     Route: 048
     Dates: start: 20060101
  6. LORAZEPAM [Concomitant]
  7. FUROSEMIDE [Concomitant]
  8. KLOR-CON [Concomitant]
  9. ASPIRIN [Concomitant]
  10. RAMIPRIL [Concomitant]
  11. LEVOTHYROXINE SODIUM [Concomitant]
  12. AMITIZA [Concomitant]
  13. SANCTURA XR [Concomitant]
  14. LORTAB [Concomitant]

REACTIONS (5)
  - CARDIOMEGALY [None]
  - DEVICE FAILURE [None]
  - LIVER DISORDER [None]
  - RENAL DISORDER [None]
  - TREMOR [None]
